FAERS Safety Report 5532344-4 (Version None)
Quarter: 2007Q4

REPORT INFORMATION
  Report Type: 
  Country: None (occurrence: None)
  Receive Date: 20071129
  Receipt Date: 20071126
  Transmission Date: 20080405
  Serious: Yes (Other)
  Sender: FDA-Public Use
  Company Number: WAES 0612USA03978

PATIENT
  Age: 57 Year
  Sex: Female
  Weight: 75.2971 kg

DRUGS (19)
  1. CAP VORINOSTAT UNK [Suspect]
     Indication: NON-SMALL CELL LUNG CANCER
     Dosage: 300 MG/DAILY/PO
     Route: 048
     Dates: start: 20061117, end: 20061126
  2. TARCEVA [Suspect]
     Indication: NON-SMALL CELL LUNG CANCER
     Dosage: 150 MG/DAILY/PO
     Route: 048
     Dates: start: 20061117, end: 20061130
  3. BACTRIN DS TABLETS [Concomitant]
  4. BENADRYL [Concomitant]
  5. COMPAZINE [Concomitant]
  6. FLOVENT [Concomitant]
  7. IMODIUM [Concomitant]
  8. LIPITOR [Concomitant]
  9. MAALOX [Concomitant]
  10. MIRAPEX [Concomitant]
  11. PREVACID [Concomitant]
  12. RESTORIL [Concomitant]
  13. SPIRIVA [Concomitant]
  14. ACEBUTOLOL [Concomitant]
  15. ALBUTEROL [Concomitant]
  16. FOLIC ACID [Concomitant]
  17. HORMONES (UNSPECIFIED) [Concomitant]
  18. POTASSIUM  (UNSPECIFIED) [Concomitant]
  19. VITAMINS (UNSPECIFIED) [Concomitant]

REACTIONS (2)
  - DERMATITIS EXFOLIATIVE [None]
  - REFUSAL OF TREATMENT BY PATIENT [None]
